FAERS Safety Report 8271641-9 (Version None)
Quarter: 2012Q2

REPORT INFORMATION
  Report Type: 
  Country: None (occurrence: None)
  Receive Date: 20120410
  Receipt Date: 20120403
  Transmission Date: 20120825
  Serious: Yes (Life-Threatening, Hospitalization, Disabling, Other)
  Sender: FDA-Public Use
  Company Number: US-VIIV HEALTHCARE LIMITED-B0781943A

PATIENT
  Age: 65 Year
  Sex: Male
  Weight: 99.1 kg

DRUGS (1)
  1. MARAVIROC [Suspect]
     Indication: HIV INFECTION
     Dosage: 300MG TWICE PER DAY
     Dates: start: 20090408

REACTIONS (2)
  - NON-HODGKIN'S LYMPHOMA [None]
  - HAEMOLYTIC ANAEMIA [None]
